FAERS Safety Report 10369351 (Version 1)
Quarter: 2014Q1

REPORT INFORMATION
  Report Type: Spontaneous
  Country: US (occurrence: None)
  Receive Date: 20140306
  Receipt Date: 20140306
  Transmission Date: 20141002
  Serious: Yes (Other)
  Sender: FDA-Public Use
  Company Number: 163-21880-13080282

PATIENT
  Age: 58 Year
  Sex: Female

DRUGS (5)
  1. REVLIMID [Suspect]
     Indication: PLASMA CELL MYELOMA
     Dosage: 21 IN 28 D, PO
     Route: 048
     Dates: start: 201204
  2. VALACYCLOVIR HCL (VALACICLOVIR HYDROCHLORIDE) (TABLETS) [Concomitant]
  3. LIPITOR (ATORVASTATIN) (TABLETS) [Concomitant]
  4. ASPIRIN (ACETYLSALICYLIC ACID) (ENTERIC-COATED TABLET) [Concomitant]
  5. NEXIUM (ESOMEPRAZOLE) (SUSTAINED-RELEASE CAPSULE) [Concomitant]

REACTIONS (2)
  - Pelvic fracture [None]
  - Deep vein thrombosis [None]
